FAERS Safety Report 8056739-2 (Version None)
Quarter: 2012Q1

REPORT INFORMATION
  Report Type: 
  Country: None (occurrence: None)
  Receive Date: 20120119
  Receipt Date: 20120111
  Transmission Date: 20120608
  Serious: Yes (Other)
  Sender: FDA-Public Use
  Company Number: FR-JNJFOC-20110909979

PATIENT
  Age: 50 Year
  Sex: Female
  Weight: 75 kg

DRUGS (12)
  1. REMICADE [Suspect]
     Route: 042
     Dates: start: 20110630
  2. REMICADE [Suspect]
     Route: 042
     Dates: start: 20110217
  3. REMICADE [Suspect]
     Route: 042
     Dates: start: 20110825
  4. IMURAN [Concomitant]
     Indication: CROHN'S DISEASE
     Route: 048
     Dates: start: 20110601
  5. VITAMIN D [Concomitant]
  6. ACETAMINOPHEN [Concomitant]
  7. REMICADE [Suspect]
     Indication: CROHN'S DISEASE
     Route: 042
     Dates: start: 20111020
  8. IRBESARTAN AND HYDROCHLOROTHIAZIDE [Concomitant]
     Indication: HYPERTENSION
  9. REMICADE [Suspect]
     Route: 042
     Dates: start: 20111215
  10. REMICADE [Suspect]
     Route: 042
     Dates: start: 20110317
  11. IMURAN [Concomitant]
     Route: 048
  12. REMICADE [Suspect]
     Dosage: 6 INFUSIONS
     Route: 042
     Dates: start: 20110203

REACTIONS (5)
  - VISUAL IMPAIRMENT [None]
  - GLAUCOMA [None]
  - INFUSION RELATED REACTION [None]
  - PHOTOPSIA [None]
  - ASTHENIA [None]
